FAERS Safety Report 17205916 (Version 1)
Quarter: 2019Q4

REPORT INFORMATION
  Report Type: Spontaneous
  Country: TR (occurrence: TR)
  Receive Date: 20191227
  Receipt Date: 20191227
  Transmission Date: 20200122
  Serious: Yes (Other)
  Sender: FDA-Public Use
  Company Number: TR-ALKEM LABORATORIES LIMITED-TR-ALKEM-2019-03038

PATIENT
  Age: 45 Year
  Sex: Female

DRUGS (4)
  1. TACROLIMUS. [Suspect]
     Active Substance: TACROLIMUS
     Indication: IMMUNOSUPPRESSANT DRUG THERAPY
     Dosage: UNK
     Route: 065
  2. CANAKINUMAB. [Concomitant]
     Active Substance: CANAKINUMAB
     Indication: FAMILIAL MEDITERRANEAN FEVER
  3. MYCOPHENOLATE MOFETIL. [Suspect]
     Active Substance: MYCOPHENOLATE MOFETIL
     Indication: IMMUNOSUPPRESSANT DRUG THERAPY
     Dosage: UNK
     Route: 065
  4. CANAKINUMAB. [Concomitant]
     Active Substance: CANAKINUMAB
     Indication: FAMILIAL AMYLOIDOSIS
     Dosage: UNK
     Route: 065

REACTIONS (2)
  - BK virus infection [Recovering/Resolving]
  - Polyomavirus-associated nephropathy [Recovering/Resolving]

NARRATIVE: CASE EVENT DATE: 201205
